FAERS Safety Report 6216471-4 (Version None)
Quarter: 2009Q2

REPORT INFORMATION
  Report Type: 
  Country: None (occurrence: None)
  Receive Date: 20090605
  Receipt Date: 20090527
  Transmission Date: 20091009
  Serious: Yes (Other)
  Sender: FDA-Public Use
  Company Number: US-AVENTIS-200912372US

PATIENT
  Sex: Female
  Weight: 63.64 kg

DRUGS (11)
  1. LOVENOX [Suspect]
     Dates: start: 20090212, end: 20090313
  2. LOVENOX [Suspect]
     Dates: start: 20090212, end: 20090313
  3. LOVENOX [Suspect]
     Dates: start: 20090212, end: 20090313
  4. LOVENOX [Suspect]
     Indication: ANTIPHOSPHOLIPID SYNDROME
     Dates: start: 20090212, end: 20090313
  5. LOVENOX [Suspect]
     Dates: start: 20090212, end: 20090313
  6. LOVENOX [Suspect]
     Dates: start: 20090212, end: 20090313
  7. LOVENOX [Suspect]
     Dates: start: 20090212, end: 20090313
  8. LOVENOX [Suspect]
     Dates: start: 20090212, end: 20090313
  9. LOVENOX [Suspect]
     Dates: start: 20090212, end: 20090313
  10. ATENOLOL [Concomitant]
  11. LEVOTHYROXINE [Concomitant]
     Indication: THYROID DISORDER
     Dosage: DOSE QUANTITY: 0.075

REACTIONS (4)
  - CONVULSION [None]
  - ILL-DEFINED DISORDER [None]
  - SPEECH DISORDER [None]
  - TRANSIENT ISCHAEMIC ATTACK [None]
